FAERS Safety Report 24140209 (Version 1)
Quarter: 2024Q3

REPORT INFORMATION
  Report Type: Report from Study
  Country: AR (occurrence: AR)
  Receive Date: 20240726
  Receipt Date: 20240726
  Transmission Date: 20241016
  Serious: Yes (Other)
  Sender: ABBVIE
  Company Number: AR-ABBVIE-5851631

PATIENT
  Age: 43 Year
  Sex: Female

DRUGS (1)
  1. RINVOQ [Suspect]
     Active Substance: UPADACITINIB
     Indication: Crohn^s disease
     Dosage: FORM STRENGTH: 45 MILLIGRAM?DOSE FORM- MODIFIED-RELEASE FILM-COATED TABLET
     Route: 048
     Dates: start: 20240715

REACTIONS (4)
  - Uterine leiomyoma [Recovered/Resolved]
  - Gastrointestinal pain [Recovered/Resolved]
  - Migraine [Recovered/Resolved]
  - Defaecation urgency [Recovered/Resolved]

NARRATIVE: CASE EVENT DATE: 20240715
